FAERS Safety Report 11236705 (Version 1)
Quarter: 2015Q3

REPORT INFORMATION
  Report Type: Spontaneous
  Country: US (occurrence: US)
  Receive Date: 20150703
  Receipt Date: 20150703
  Transmission Date: 20151125
  Serious: No
  Sender: FDA-Public Use
  Company Number: US-TAKEDA-2015TUS005322

PATIENT
  Sex: Male
  Weight: 112.2 kg

DRUGS (4)
  1. CONTRAVE [Suspect]
     Active Substance: BUPROPION HYDROCHLORIDE\NALTREXONE HYDROCHLORIDE
     Dosage: TWO IN THE MORNING AND TWO IN THE EVENING
     Route: 048
     Dates: start: 2015, end: 2015
  2. CONTRAVE [Suspect]
     Active Substance: BUPROPION HYDROCHLORIDE\NALTREXONE HYDROCHLORIDE
     Indication: WEIGHT CONTROL
     Dosage: ONE IN THE MORNING
     Route: 048
     Dates: start: 20150317, end: 201503
  3. CONTRAVE [Suspect]
     Active Substance: BUPROPION HYDROCHLORIDE\NALTREXONE HYDROCHLORIDE
     Dosage: TWO IN THE MORNING AND ONE IN THE EVENING
     Route: 048
     Dates: start: 2015, end: 2015
  4. CONTRAVE [Suspect]
     Active Substance: BUPROPION HYDROCHLORIDE\NALTREXONE HYDROCHLORIDE
     Dosage: ONE IN THE MORNING AND ONE IN THE EVENING
     Route: 048
     Dates: start: 201503, end: 2015

REACTIONS (1)
  - Drug ineffective [Not Recovered/Not Resolved]
